FAERS Safety Report 5392981-7 (Version None)
Quarter: 2007Q3

REPORT INFORMATION
  Report Type: 
  Country: None (occurrence: None)
  Receive Date: 20070719
  Receipt Date: 20070710
  Transmission Date: 20080115
  Serious: Yes (Other)
  Sender: FDA-Public Use
  Company Number: E2090-00266-SOL-US

PATIENT
  Age: 20 Year
  Sex: Female

DRUGS (4)
  1. ZONEGRAN [Suspect]
     Indication: EPILEPSY
     Dosage: 300 MG,  1 IN 1 D, ORAL
     Route: 048
  2. DEPAKOTE [Suspect]
     Indication: EPILEPSY
     Dosage: 500 MG, 1 IN 1 D, ORAL
     Route: 048
  3. PRENATAL VITAMINS (PRENATAL VITAMINS) [Concomitant]
  4. FOLIC ACID [Concomitant]

REACTIONS (2)
  - DRUG EXPOSURE DURING PREGNANCY [None]
  - INTRA-UTERINE DEATH [None]
